FAERS Safety Report 21526900 (Version 2)
Quarter: 2022Q4

REPORT INFORMATION
  Report Type: Spontaneous
  Country: JP (occurrence: JP)
  Receive Date: 20221031
  Receipt Date: 20221124
  Transmission Date: 20230112
  Serious: Yes (Hospitalization)
  Sender: FDA-Public Use
  Company Number: JP-CHUGAI-2022041652

PATIENT
  Age: 59 Year
  Sex: Female
  Weight: 55.3 kg

DRUGS (1)
  1. ENSPRYNG [Suspect]
     Active Substance: SATRALIZUMAB-MWGE
     Indication: Neuromyelitis optica spectrum disorder
     Dosage: ONCE/4WEEKS
     Route: 058
     Dates: start: 20220515

REACTIONS (3)
  - Dysuria [Unknown]
  - COVID-19 [Recovered/Resolved]
  - Urinary tract infection [Recovered/Resolved]

NARRATIVE: CASE EVENT DATE: 20220901
